FAERS Safety Report 23992718 (Version 1)
Quarter: 2024Q2

REPORT INFORMATION
  Report Type: Report from Study
  Country: US (occurrence: US)
  Receive Date: 20240620
  Receipt Date: 20240620
  Transmission Date: 20240716
  Serious: Yes (Other)
  Sender: FDA-Public Use
  Company Number: US-UCBSA-2022018391

PATIENT
  Age: 90 Year
  Sex: Female
  Weight: 61.23 kg

DRUGS (9)
  1. LACOSAMIDE [Suspect]
     Active Substance: LACOSAMIDE
     Indication: Seizure
     Dosage: 50 MILLIGRAM, 2X/DAY (BID)
     Route: 048
     Dates: start: 202111
  2. LACOSAMIDE [Suspect]
     Active Substance: LACOSAMIDE
     Dosage: 200 MILLIGRAM, 2X/DAY (BID)
     Route: 048
     Dates: start: 202112
  3. LACOSAMIDE [Suspect]
     Active Substance: LACOSAMIDE
     Dosage: 200MG TWICE DAILY AND 100MG 3 TABS DAILY
     Route: 048
     Dates: start: 20220114
  4. LACOSAMIDE [Suspect]
     Active Substance: LACOSAMIDE
     Dosage: 100 MILLIGRAM, 2X/DAY (BID)
     Route: 048
     Dates: start: 20220321
  5. LACOSAMIDE [Suspect]
     Active Substance: LACOSAMIDE
     Dosage: 50MG AM AND 100MG PM
     Route: 048
     Dates: start: 2022
  6. LACOSAMIDE [Suspect]
     Active Substance: LACOSAMIDE
     Dosage: 100MG- 1 TAB AM + 150MG 1 TAB PM
  7. LACOSAMIDE [Suspect]
     Active Substance: LACOSAMIDE
     Dosage: 100MG 1 TABLET IN THE MORING
  8. LEVOTHYROXINE [Concomitant]
     Active Substance: LEVOTHYROXINE\LEVOTHYROXINE SODIUM
     Indication: Thyroid disorder
     Dosage: UNK
  9. ASPIRIN [Concomitant]
     Active Substance: ASPIRIN
     Indication: Anticoagulant therapy
     Dosage: UNK

REACTIONS (6)
  - Seizure [Recovered/Resolved]
  - Cerebrovascular accident [Unknown]
  - Anxiety [Recovered/Resolved]
  - Vision blurred [Unknown]
  - Overdose [Unknown]
  - Product use issue [Unknown]

NARRATIVE: CASE EVENT DATE: 20220114
